FAERS Safety Report 8932949 (Version 14)
Quarter: 2015Q2

REPORT INFORMATION
  Report Type: Report from Study
  Country: DE (occurrence: DE)
  Receive Date: 20121128
  Receipt Date: 20150526
  Transmission Date: 20150821
  Serious: Yes (Other)
  Sender: FDA-Public Use
  Company Number: DE-ROCHE-1160479

PATIENT
  Age: 40 Year
  Sex: Male
  Weight: 95 kg

DRUGS (2)
  1. ASPIRIN. [Concomitant]
     Active Substance: ASPIRIN
     Indication: HEADACHE
     Route: 048
     Dates: start: 20111216
  2. VEMURAFENIB [Suspect]
     Active Substance: VEMURAFENIB
     Indication: METASTATIC MALIGNANT MELANOMA
     Dosage: LAST DOSE PRIOR TO SAE VIRUSAKANTHOMA CHEEK LEFT: 18/DEC/2011?MOST RECENT DOSE ON 04/NOV/2012
     Route: 048
     Dates: start: 20111122

REACTIONS (1)
  - Acanthoma [Not Recovered/Not Resolved]

NARRATIVE: CASE EVENT DATE: 20111219
